FAERS Safety Report 10553795 (Version 2)
Quarter: 2014Q4

REPORT INFORMATION
  Report Type: Report from Study
  Country: CA (occurrence: CA)
  Receive Date: 20141030
  Receipt Date: 20141030
  Transmission Date: 20150529
  Serious: Yes (Death, Hospitalization, Other)
  Sender: FDA-Public Use
  Company Number: PHHY2012CA073864

PATIENT
  Age: 77 Year
  Sex: Female

DRUGS (5)
  1. COUMADIN [Concomitant]
     Active Substance: WARFARIN SODIUM
     Indication: PRODUCT USED FOR UNKNOWN INDICATION
     Dosage: UNK UKN, UNK
     Route: 065
  2. SANDOSTATIN LAR DEPOT [Suspect]
     Active Substance: OCTREOTIDE ACETATE
     Dosage: 30 MG, EVERY 4 WEEKS
     Route: 030
     Dates: start: 20121015
  3. SANDOSTATIN LAR DEPOT [Suspect]
     Active Substance: OCTREOTIDE ACETATE
     Indication: NEUROENDOCRINE TUMOUR
     Dosage: 30 MG, EVERY 4 WEEKS
     Route: 030
     Dates: start: 20120626
  4. SANDOSTATIN LAR DEPOT [Suspect]
     Active Substance: OCTREOTIDE ACETATE
     Dosage: 60 MG, EVERY 4 WEEKS
     Route: 030
     Dates: end: 20140922
  5. WARFARIN [Concomitant]
     Active Substance: WARFARIN
     Indication: ATRIAL FIBRILLATION
     Dosage: UNK UKN, UNK
     Route: 065

REACTIONS (18)
  - Injection site mass [Unknown]
  - Blood pressure increased [Unknown]
  - Movement disorder [Unknown]
  - Decreased appetite [Unknown]
  - Intestinal obstruction [Unknown]
  - Nausea [Unknown]
  - Heart rate irregular [Not Recovered/Not Resolved]
  - Confusional state [Unknown]
  - Sedation [Unknown]
  - Feeding disorder [Unknown]
  - 5-hydroxyindolacetic acid increased [Recovering/Resolving]
  - Contusion [Unknown]
  - Coordination abnormal [Unknown]
  - Diarrhoea [Unknown]
  - Death [Fatal]
  - Disease progression [Unknown]
  - Blood creatinine increased [Recovering/Resolving]
  - Joint swelling [Unknown]

NARRATIVE: CASE EVENT DATE: 20140331
